FAERS Safety Report 26211199 (Version 1)
Quarter: 2025Q4

REPORT INFORMATION
  Report Type: Spontaneous
  Country: JP (occurrence: JP)
  Receive Date: 20251230
  Receipt Date: 20251230
  Transmission Date: 20260118
  Serious: Yes (Other)
  Sender: ALEXION PHARMACEUTICALS
  Company Number: JP-AstraZeneca-CH-00960883A

PATIENT
  Age: 78 Year
  Sex: Female

DRUGS (2)
  1. LYNPARZA [Suspect]
     Active Substance: OLAPARIB
     Indication: Endometrial cancer
     Dosage: 300 MILLIGRAM, BID
     Route: 061
  2. IMFINZI [Suspect]
     Active Substance: DURVALUMAB
     Indication: Endometrial cancer
     Dosage: 1500 MILLIGRAM, Q4W
     Dates: start: 20250325

REACTIONS (4)
  - Renal impairment [Unknown]
  - Anaemia [Recovering/Resolving]
  - Blood creatinine increased [Recovering/Resolving]
  - Blood glucose increased [Unknown]

NARRATIVE: CASE EVENT DATE: 20251010
